FAERS Safety Report 15387240 (Version 1)
Quarter: 2018Q4

REPORT INFORMATION
  Report Type: Spontaneous
  Country: IT (occurrence: IT)
  Receive Date: 20180914
  Receipt Date: 20180914
  Transmission Date: 20190204
  Serious: Yes (Hospitalization, Other)
  Sender: FDA-Public Use
  Company Number: IT-SA-2018SA252585

PATIENT
  Age: 65 Year
  Sex: Female

DRUGS (11)
  1. LEDERFOLIN [Concomitant]
     Active Substance: LEUCOVORIN CALCIUM
     Dates: start: 20130325
  2. RIFAMPICIN [Suspect]
     Active Substance: RIFAMPIN
     Indication: ENTEROBACTER TEST POSITIVE
     Route: 042
     Dates: start: 20130301, end: 20130327
  3. LYRICA [Concomitant]
     Active Substance: PREGABALIN
     Dosage: 1 DF
     Route: 048
     Dates: start: 20130306, end: 20130326
  4. PANTORC [Concomitant]
     Active Substance: PANTOPRAZOLE SODIUM
     Dates: start: 20130325
  5. ENOXAPARINA [Concomitant]
     Active Substance: ENOXAPARIN
     Dates: start: 20130306, end: 20130324
  6. TRAMADOLO [Concomitant]
     Active Substance: TRAMADOL
     Dates: start: 20130306, end: 20130324
  7. LEVOFLOXACIN WINTHROP [Suspect]
     Active Substance: LEVOFLOXACIN
     Indication: ENTEROBACTER TEST POSITIVE
     Route: 042
     Dates: start: 20130301, end: 20130326
  8. TACHIPIRINA [Concomitant]
     Active Substance: ACETAMINOPHEN
     Dates: start: 20130325
  9. OMEPRAZOLO [Concomitant]
     Active Substance: OMEPRAZOLE
     Dates: start: 20130306, end: 20130324
  10. VANCOMYCIN [Suspect]
     Active Substance: VANCOMYCIN
     Indication: ENTEROBACTER TEST POSITIVE
     Route: 042
     Dates: start: 20130301, end: 20130326
  11. LYRICA [Concomitant]
     Active Substance: PREGABALIN
     Dosage: 1 DF
     Route: 048
     Dates: start: 20130306, end: 20130324

REACTIONS (4)
  - Erythema multiforme [Recovering/Resolving]
  - Urticaria [Recovering/Resolving]
  - Laryngeal oedema [Recovering/Resolving]
  - Drug interaction [Recovering/Resolving]

NARRATIVE: CASE EVENT DATE: 20130326
